FAERS Safety Report 8976357 (Version 4)
Quarter: 2017Q4

REPORT INFORMATION
  Report Type: Report from Study
  Country: KR (occurrence: KR)
  Receive Date: 20121220
  Receipt Date: 20171006
  Transmission Date: 20180321
  Serious: Yes (Hospitalization)
  Sender: FDA-Public Use
  Company Number: KR-BRISTOL-MYERS SQUIBB COMPANY-17097049

PATIENT
  Age: 22 Year
  Sex: Male

DRUGS (4)
  1. ARIPIPRAZOLE. [Suspect]
     Active Substance: ARIPIPRAZOLE
     Indication: PRODUCT USED FOR UNKNOWN INDICATION
     Dosage: 400 MG MILLIGRAM(S), EVERY 4 WEEK
     Route: 030
     Dates: start: 20121022
  2. ARIPIPRAZOLE. [Suspect]
     Active Substance: ARIPIPRAZOLE
     Indication: SCHIZOPHRENIA
     Dosage: RED TO 300 MG:1AUG12.  INCRES AGAIN TO 400MG  04JUN12-31JL:400MG  1AU-21OC:300MG  22OC-ONG:400MG
     Route: 030
     Dates: start: 20120704
  3. ARIPIPRAZOLE. [Suspect]
     Active Substance: ARIPIPRAZOLE
     Indication: PRODUCT USED FOR UNKNOWN INDICATION
     Dosage: 400 MG MILLIGRAM(S), EVERY 4 WEEKS
     Route: 030
     Dates: start: 20120704, end: 20120731
  4. ARIPIPRAZOLE. [Suspect]
     Active Substance: ARIPIPRAZOLE
     Indication: PRODUCT USED FOR UNKNOWN INDICATION
     Dosage: 300 MG MILLIGRAM(S), EVERY 4 WEEK
     Route: 030
     Dates: start: 20120801, end: 20121021

REACTIONS (1)
  - Impulse-control disorder [Recovered/Resolved]

NARRATIVE: CASE EVENT DATE: 20121011
